FAERS Safety Report 7473899-2 (Version None)
Quarter: 2011Q2

REPORT INFORMATION
  Report Type: 
  Country: None (occurrence: None)
  Receive Date: 20110511
  Receipt Date: 20110404
  Transmission Date: 20111010
  Serious: Yes (Other)
  Sender: FDA-Public Use
  Company Number: US-BAYER-201028626NA

PATIENT
  Age: 27 Year
  Sex: Female
  Weight: 75 kg

DRUGS (5)
  1. YASMIN [Suspect]
     Indication: CONTRACEPTION
     Dosage: 1 DF, QD
     Route: 048
     Dates: start: 20060301, end: 20081201
  2. DROSPIRENONE AND ETHINYL ESTRADIOL [Suspect]
     Indication: CONTRACEPTION
     Dosage: 1 DF, QD
     Dates: start: 20060301, end: 20081201
  3. IRON [IRON] [Concomitant]
  4. VITAMINS NOS [Concomitant]
  5. CIPROFLOXACIN HYDROCHLORIDE [Concomitant]
     Dosage: 500 MG
     Route: 048
     Dates: start: 20080901

REACTIONS (3)
  - GALLBLADDER INJURY [None]
  - CHOLECYSTITIS ACUTE [None]
  - CHOLECYSTITIS CHRONIC [None]
